FAERS Safety Report 5408624-X (Version None)
Quarter: 2007Q3

REPORT INFORMATION
  Report Type: 
  Country: None (occurrence: None)
  Receive Date: 20070808
  Receipt Date: 20070731
  Transmission Date: 20080115
  Serious: Yes (Hospitalization, Other)
  Sender: FDA-Public Use
  Company Number: PHBS2006JP19807

PATIENT
  Age: 44 Year
  Sex: Male

DRUGS (1)
  1. RITALIN [Suspect]
     Indication: DEPRESSION
     Dosage: 2 DF, UNK
     Route: 048

REACTIONS (11)
  - DEPRESSION [None]
  - DREAMY STATE [None]
  - DRUG DEPENDENCE [None]
  - INSOMNIA [None]
  - INTENTIONAL OVERDOSE [None]
  - IRRITABILITY [None]
  - LOSS OF CONSCIOUSNESS [None]
  - MOOD ALTERED [None]
  - PNEUMONIA ASPIRATION [None]
  - PSYCHOTHERAPY [None]
  - PYREXIA [None]
